FAERS Safety Report 7849347 (Version 3)
Quarter: 2013Q1

REPORT INFORMATION
  Report Type: Spontaneous
  Country: JP (occurrence: JP)
  Receive Date: 20110310
  Receipt Date: 20130107
  Transmission Date: 20140127
  Serious: Yes (Hospitalization)
  Sender: FDA-Public Use
  Company Number: JP-NOVOPROD-324145

PATIENT
  Age: 76 Year
  Sex: Male
  Weight: 57 kg

DRUGS (10)
  1. NOVORAPID [Suspect]
     Indication: LATENT AUTOIMMUNE DIABETES IN ADULTS
     Dosage: 12 U, QD
     Route: 058
     Dates: start: 200907
  2. NOVORAPID [Suspect]
     Indication: LATENT AUTOIMMUNE DIABETES IN ADULTS
     Dosage: 23 U, QD
     Route: 058
     Dates: start: 200907
  3. ALMARL [Concomitant]
     Dosage: 10 MG, QD
     Route: 048
  4. LASIX                              /00032601/ [Concomitant]
     Dosage: 20 MG, QD
     Route: 048
  5. BAYASPIRIN [Concomitant]
     Dosage: 100 MG, QD
     Route: 048
  6. OMEPRAL /00661201/ [Concomitant]
     Dosage: 20 MG, QD
     Route: 048
  7. RHYTHMY [Concomitant]
     Dosage: 1 MG, QD
     Route: 048
  8. GASMOTIN [Concomitant]
     Dosage: 15 MG, QD
     Route: 048
  9. BIOFERMIN [Concomitant]
     Dosage: 18 MG, QD
     Route: 048
  10. SEIBULE [Concomitant]
     Dosage: 150 MG, QD
     Route: 048

REACTIONS (2)
  - Anti-insulin antibody positive [Recovering/Resolving]
  - Hypoglycaemia [Recovered/Resolved]
